FAERS Safety Report 5268606-8 (Version None)
Quarter: 2007Q1

REPORT INFORMATION
  Report Type: 
  Country: None (occurrence: None)
  Receive Date: 20070314
  Receipt Date: 20070228
  Transmission Date: 20070707
  Serious: Yes (Death, Hospitalization)
  Sender: FDA-Public Use
  Company Number: 2004IM000915

PATIENT
  Age: 73 Year
  Sex: Female
  Weight: 96.6162 kg

DRUGS (23)
  1. INTERFERON GAMMA-1B [Suspect]
     Indication: IDIOPATHIC PULMONARY FIBROSIS
     Dosage: 200 UG, TIW, SUBCUTANEOUS
     Route: 058
     Dates: start: 20040729, end: 20041022
  2. INSULIN [Concomitant]
  3. LOVASTATIN [Concomitant]
  4. PAROXETINE HCL [Concomitant]
  5. NORVASC [Concomitant]
  6. GLIPIZIDE [Concomitant]
  7. ASPIRIN [Concomitant]
  8. GLUCOSAMINE CHONDROITIN [Concomitant]
  9. FERROUS SULFATE [Concomitant]
  10. KLOR-CON [Concomitant]
  11. ISOSORBIDE [Concomitant]
  12. DIOVAN [Concomitant]
  13. FOLTEX [Concomitant]
  14. PLAVIX [Concomitant]
  15. ULTRACET [Concomitant]
  16. COMBIVENT [Concomitant]
  17. NEURONTIN [Concomitant]
  18. NITROSTAT [Concomitant]
  19. NASACORT [Concomitant]
  20. ACETAMINOPHEN [Concomitant]
  21. INFLUENZA [Concomitant]
  22. PNEUMOCOCCAL [Concomitant]
  23. FUROSEMIDE [Concomitant]

REACTIONS (14)
  - ARTERIAL RUPTURE [None]
  - CARDIAC ARREST [None]
  - CARDIAC FAILURE CONGESTIVE [None]
  - COUGH [None]
  - DISORIENTATION [None]
  - EXSANGUINATION [None]
  - HAEMOPTYSIS [None]
  - HAEMORRHAGE [None]
  - HYPERGLYCAEMIA [None]
  - HYPOTENSION [None]
  - INJECTION SITE CELLULITIS [None]
  - MALAISE [None]
  - METABOLIC DISORDER [None]
  - MYOPATHY [None]
